FAERS Safety Report 7357267-X (Version None)
Quarter: 2011Q1

REPORT INFORMATION
  Report Type: 
  Country: None (occurrence: None)
  Receive Date: 20110311
  Receipt Date: 20110311
  Transmission Date: 20110831
  Serious: Yes (Other)
  Sender: FDA-Public Use
  Company Number: None

PATIENT
  Sex: Female
  Weight: 75 kg

DRUGS (3)
  1. HYDROMORPHONE HCL [Concomitant]
  2. MORPHINE [Concomitant]
  3. ONDANSETRON [Suspect]
     Indication: NAUSEA
     Dosage: 4MG ONCE INTRAVENOUS
     Route: 042
     Dates: start: 20110301

REACTIONS (2)
  - PRURITUS [None]
  - INJECTION SITE PHLEBITIS [None]
